FAERS Safety Report 24708384 (Version 2)
Quarter: 2024Q4

REPORT INFORMATION
  Report Type: Report from Study
  Country: BR (occurrence: BR)
  Receive Date: 20241207
  Receipt Date: 20241218
  Transmission Date: 20250115
  Serious: Yes (Hospitalization, Other)
  Sender: CELLTRION
  Company Number: BR-CELLTRION INC.-2024BR030407

PATIENT

DRUGS (5)
  1. INFLIXIMAB-DYYB [Suspect]
     Active Substance: INFLIXIMAB-DYYB
     Indication: Colitis ulcerative
     Dosage: 6 AMPOULES EVERY 8 WEEKS
     Route: 042
     Dates: start: 20240923
  2. INFLIXIMAB-DYYB [Suspect]
     Active Substance: INFLIXIMAB-DYYB
     Dosage: 6 AMPOULES EVERY 8 WEEKS
     Route: 042
     Dates: start: 20241203
  3. PREDNISONE [Concomitant]
     Active Substance: PREDNISONE
     Indication: Product used for unknown indication
     Dosage: INITIALLY 20MG FOR THE FIRST WEEK (HE HAD WEANED OFF 2 MONTHS AGO, AT THE END OF JUNE TO AUGUST
     Route: 048
     Dates: start: 20241122
  4. MESALAMINE [Concomitant]
     Active Substance: MESALAMINE
     Indication: Product used for unknown indication
     Dosage: 2 PILLS OF 800MG EVERY 12 HOURS (WHICH HE HAD WEANED OFF 10 DAYS AGO)
     Route: 048
     Dates: start: 20241122
  5. MESALAMINE [Concomitant]
     Active Substance: MESALAMINE
     Dosage: 2 PILLS EVERY 12 HOURS
     Route: 054
     Dates: start: 20241122

REACTIONS (18)
  - Thrombosis [Recovering/Resolving]
  - Colitis ulcerative [Recovering/Resolving]
  - Rectal haemorrhage [Recovering/Resolving]
  - Dysentery [Recovering/Resolving]
  - Malaise [Recovering/Resolving]
  - Abdominal pain [Recovering/Resolving]
  - Syncope [Recovering/Resolving]
  - Infection [Unknown]
  - Decreased appetite [Recovering/Resolving]
  - Inflammation [Recovering/Resolving]
  - Diarrhoea [Recovering/Resolving]
  - Anaemia [Recovering/Resolving]
  - Constipation [Recovering/Resolving]
  - Pallor [Recovering/Resolving]
  - Dizziness [Recovering/Resolving]
  - Vision blurred [Recovering/Resolving]
  - Intentional dose omission [Unknown]
  - Therapeutic response shortened [Unknown]

NARRATIVE: CASE EVENT DATE: 20241114
